FAERS Safety Report 9160081 (Version 1)
Quarter: 2013Q1

REPORT INFORMATION
  Report Type: Spontaneous
  Country: US (occurrence: US)
  Receive Date: 20130313
  Receipt Date: 20130313
  Transmission Date: 20140127
  Serious: Yes (Other)
  Sender: FDA-Public Use
  Company Number: US-BAYER-2013-028825

PATIENT
  Age: 40 Year
  Sex: Female

DRUGS (14)
  1. YASMIN [Suspect]
     Dosage: UNK
  2. AUGMENTIN [Concomitant]
     Dosage: 500 MG, BID
  3. GLUCOPHAGE [Concomitant]
     Dosage: 500 MG, UNK
     Dates: start: 20061009
  4. GLUCOPHAGE [Concomitant]
     Dosage: 500 MG, UNK
     Dates: start: 20061210
  5. GLUCOPHAGE [Concomitant]
     Dosage: 500 MG, UNK
     Dates: start: 20061214
  6. ATIVAN [Concomitant]
     Indication: ANXIETY
     Dosage: 1 MG, BID
  7. AMBIEN CR [Concomitant]
     Dosage: 12.5 MG, HS PRN
     Dates: start: 20061116
  8. AMBIEN CR [Concomitant]
     Dosage: 12.5 MG, HS PRN
     Dates: start: 20061220
  9. CYMBALTA [Concomitant]
     Dosage: 20 MG, UNK
     Dates: start: 20061009
  10. CYMBALTA [Concomitant]
     Dosage: 20 MG, UNK
     Dates: start: 20061209
  11. NORCO [Concomitant]
     Indication: PAIN
     Dosage: 1-2 TABS Q 4-6 HRS
     Dates: start: 20061220
  12. HYDROXYZINE [Concomitant]
     Dosage: 25 MG, HS
  13. MIRALAX [Concomitant]
     Indication: CONSTIPATION
     Dosage: UNK
  14. COLACE [Concomitant]
     Dosage: UNK

REACTIONS (2)
  - Deep vein thrombosis [None]
  - Gallbladder disorder [None]
